FAERS Safety Report 22346258 (Version 2)
Quarter: 2023Q2

REPORT INFORMATION
  Report Type: Spontaneous
  Country: US (occurrence: US)
  Receive Date: 20230519
  Receipt Date: 20230613
  Transmission Date: 20230721
  Serious: Yes (Death, Hospitalization, Other)
  Sender: FDA-Public Use
  Company Number: US-ORGANON-O2305USA001168

PATIENT
  Age: 61 Year
  Sex: Female

DRUGS (4)
  1. ZOCOR [Suspect]
     Active Substance: SIMVASTATIN
     Dosage: 1600 MG
     Route: 048
  2. AMLODIPINE [Suspect]
     Active Substance: AMLODIPINE BESYLATE
     Dosage: 900 MG
  3. ATENOLOL [Suspect]
     Active Substance: ATENOLOL
     Dosage: 2250 MG
  4. HYDROCHLOROTHIAZIDE [Suspect]
     Active Substance: HYDROCHLOROTHIAZIDE
     Dosage: 1025 MG

REACTIONS (2)
  - Completed suicide [Fatal]
  - Intentional overdose [Fatal]
